FAERS Safety Report 25721465 (Version 2)
Quarter: 2025Q3

REPORT INFORMATION
  Report Type: Spontaneous
  Country: EU (occurrence: EU)
  Receive Date: 20250825
  Receipt Date: 20250929
  Transmission Date: 20251020
  Serious: Yes (Death, Hospitalization)
  Sender: BAUSCH AND LOMB
  Company Number: EU-TEVA-VS-3360657

PATIENT
  Age: 80 Year
  Sex: Female

DRUGS (2)
  1. AZATHIOPRINE [Suspect]
     Active Substance: AZATHIOPRINE
     Indication: Autoimmune hepatitis
     Route: 065
     Dates: start: 2021
  2. PREDNISOLONE [Suspect]
     Active Substance: PREDNISOLONE
     Indication: Autoimmune hepatitis
     Dates: start: 2021

REACTIONS (13)
  - Circulatory collapse [Fatal]
  - Septic shock [Fatal]
  - Nocardia sepsis [Fatal]
  - Disseminated nocardiosis [Fatal]
  - Herpes simplex pneumonia [Unknown]
  - Bronchopulmonary aspergillosis [Unknown]
  - Lung abscess [Unknown]
  - Peritonitis bacterial [Unknown]
  - Pneumonia [Unknown]
  - Renal abscess [Unknown]
  - Abscess soft tissue [Unknown]
  - Abdominal abscess [Unknown]
  - Aspergillus infection [Unknown]

NARRATIVE: CASE EVENT DATE: 20210101
